FAERS Safety Report 5017070-2 (Version None)
Quarter: 2006Q2

REPORT INFORMATION
  Report Type: 
  Country: None (occurrence: None)
  Receive Date: 20060526
  Receipt Date: 20060511
  Transmission Date: 20061013
  Serious: Yes (Hospitalization)
  Sender: FDA-Public Use
  Company Number: US-CVT-060995

PATIENT
  Age: 40 Year
  Sex: Male

DRUGS (3)
  1. RANEXA [Suspect]
     Indication: ANGINA PECTORIS
     Dosage: 500 MG, QD, ORAL
     Route: 048
     Dates: start: 20060503, end: 20060506
  2. SOTALOL /00371502/ (SOTALOL HYDROCHLORIDE) [Concomitant]
  3. LITHIUM /00033701/ (LITHIUM) [Concomitant]

REACTIONS (5)
  - DEVICE ELECTRICAL FINDING [None]
  - ELECTROCARDIOGRAM R ON T PHENOMENON [None]
  - IMPLANTABLE DEFIBRILLATOR MALFUNCTION [None]
  - TORSADE DE POINTES [None]
  - VENTRICULAR TACHYCARDIA [None]
